FAERS Safety Report 21401235 (Version 1)
Quarter: 2022Q4

REPORT INFORMATION
  Report Type: Spontaneous
  Country: US (occurrence: US)
  Receive Date: 20221003
  Receipt Date: 20221003
  Transmission Date: 20230113
  Serious: No
  Sender: FDA-Public Use
  Company Number: US-LUPIN PHARMACEUTICALS INC.-2022-11551

PATIENT
  Age: 81 Year
  Sex: Male

DRUGS (24)
  1. LEVOFLOXACIN [Suspect]
     Active Substance: LEVOFLOXACIN
     Indication: Chronic obstructive pulmonary disease
     Dosage: 750 MG, QD
     Route: 048
  2. CEFTRIAXONE [Suspect]
     Active Substance: CEFTRIAXONE
     Indication: Chronic obstructive pulmonary disease
     Dosage: UNK
     Route: 065
  3. LISINOPRIL [Concomitant]
     Active Substance: LISINOPRIL
     Indication: Hypertension
     Dosage: 10 MG, QD
     Route: 048
  4. SERTRALINE [Concomitant]
     Active Substance: SERTRALINE HYDROCHLORIDE
     Indication: Post-traumatic stress disorder
     Dosage: 200 MG, QD
     Route: 048
  5. SERTRALINE [Concomitant]
     Active Substance: SERTRALINE HYDROCHLORIDE
     Indication: Depression
  6. SIMVASTATIN [Concomitant]
     Active Substance: SIMVASTATIN
     Indication: Hyperlipidaemia
     Dosage: 40 MG, QD, NIGHTLY
     Route: 048
  7. OXYCODONE AND ACETAMINOPHEN [Concomitant]
     Active Substance: ACETAMINOPHEN\OXYCODONE HYDROCHLORIDE
     Indication: Pain
     Dosage: UNK UNK, PRN,  10/650 MG EVERY 6 HOURS AS NEEDED
     Route: 048
  8. TRIAZOLAM [Concomitant]
     Active Substance: TRIAZOLAM
     Indication: Depression
     Dosage: 0.125 MG, PRN, NIGHTLY AS NEEDED
     Route: 048
  9. OMEPRAZOLE [Concomitant]
     Active Substance: OMEPRAZOLE
     Indication: Product used for unknown indication
     Dosage: 20 MG, BID
     Route: 048
  10. BUSPIRONE [Concomitant]
     Active Substance: BUSPIRONE HYDROCHLORIDE
     Indication: Post-traumatic stress disorder
     Dosage: 15 MG, QD
     Route: 048
  11. MIRTAZAPINE [Concomitant]
     Active Substance: MIRTAZAPINE
     Indication: Depression
     Dosage: 30 MG, QD, NIGHTLY
     Route: 048
  12. MOMETASONE [Concomitant]
     Active Substance: MOMETASONE
     Indication: Chronic obstructive pulmonary disease
     Dosage: 220 MICROGRAM, BID
  13. ALBUTEROL [Concomitant]
     Active Substance: ALBUTEROL
     Indication: Chronic obstructive pulmonary disease
     Dosage: 90 MICROGRAM, PRN, INHALER; 1-2 PUFFS EVERY 6 HOURS AS NEEDED
  14. FORMOTEROL [Concomitant]
     Active Substance: FORMOTEROL
     Indication: Chronic obstructive pulmonary disease
     Dosage: 12 MICROGRAM, BID
  15. ASPIRIN [Concomitant]
     Active Substance: ASPIRIN
     Indication: Coronary artery disease
     Dosage: 81 MG, QD
     Route: 048
  16. METFORMIN [Concomitant]
     Active Substance: METFORMIN HYDROCHLORIDE
     Indication: Diabetes mellitus
     Dosage: 500 MG, BID
     Route: 048
  17. CHOLECALCIFEROL [Concomitant]
     Active Substance: CHOLECALCIFEROL
     Indication: Vitamin supplementation
     Dosage: 1000 INTERNATIONAL UNIT, QD
     Route: 048
  18. CARBOXYMETHYLCELLULOSE [Concomitant]
     Active Substance: CARBOXYMETHYLCELLULOSE
     Indication: Glaucoma
     Dosage: 1 DROP, QID
     Route: 065
  19. DORZOLAMIDE [Concomitant]
     Active Substance: DORZOLAMIDE
     Indication: Glaucoma
     Dosage: 1 DROP, BID
     Route: 065
  20. TRAVOPROST [Concomitant]
     Active Substance: TRAVOPROST
     Indication: Glaucoma
     Dosage: 1 DROP, QD AT BED TIME
     Route: 065
  21. METHYLPREDNISOLONE [Concomitant]
     Active Substance: METHYLPREDNISOLONE
     Indication: Chronic obstructive pulmonary disease
     Dosage: UNK
  22. AZITHROMYCIN [Concomitant]
     Active Substance: AZITHROMYCIN
     Indication: Chronic obstructive pulmonary disease
     Dosage: UNK
     Route: 065
  23. PREDNISONE [Concomitant]
     Active Substance: PREDNISONE
     Indication: Chronic obstructive pulmonary disease
     Dosage: 40 MG, QD
     Route: 048
  24. IPRATROPIUM [Concomitant]
     Active Substance: IPRATROPIUM
     Indication: Chronic obstructive pulmonary disease
     Dosage: UNK, NEBULIZATIONS EVERY 2 HOURS
     Route: 065

REACTIONS (1)
  - Off label use [Unknown]
